FAERS Safety Report 20495577 (Version 1)
Quarter: 2022Q1

REPORT INFORMATION
  Report Type: Spontaneous
  Country: DE (occurrence: DE)
  Receive Date: 20220221
  Receipt Date: 20220221
  Transmission Date: 20220424
  Serious: Yes (Other)
  Sender: FDA-Public Use
  Company Number: DE-PFIZER INC-202101062465

PATIENT
  Sex: Female

DRUGS (1)
  1. ATORVASTATIN [Suspect]
     Active Substance: ATORVASTATIN
     Indication: Low density lipoprotein increased
     Dosage: 60 MG

REACTIONS (4)
  - Gamma-glutamyltransferase increased [Unknown]
  - Glycosylated haemoglobin increased [Not Recovered/Not Resolved]
  - Alanine aminotransferase increased [Unknown]
  - Thirst [Unknown]
